FAERS Safety Report 5909416-5 (Version None)
Quarter: 2008Q4

REPORT INFORMATION
  Report Type: 
  Country: None (occurrence: None)
  Receive Date: 20081006
  Receipt Date: 20080926
  Transmission Date: 20090506
  Serious: Yes (Life-Threatening, Disabling, Other)
  Sender: FDA-Public Use
  Company Number: US-B.I. PHARMACEUTICALS,INC./RIDGEFIELD-2008-BP-15031BP

PATIENT
  Sex: Male

DRUGS (3)
  1. SPIRIVA [Suspect]
     Indication: CHRONIC OBSTRUCTIVE PULMONARY DISEASE
     Dosage: 18MCG
     Route: 055
     Dates: start: 20080918, end: 20080923
  2. SPIRIVA [Suspect]
     Dosage: 18MCG
     Route: 055
     Dates: start: 20080923
  3. INSULIN [Concomitant]
     Indication: DIABETES MELLITUS
     Route: 058

REACTIONS (11)
  - CEREBROVASCULAR ACCIDENT [None]
  - DISORIENTATION [None]
  - DYSARTHRIA [None]
  - DYSPNOEA [None]
  - FACIAL PALSY [None]
  - FEELING ABNORMAL [None]
  - HYPOAESTHESIA [None]
  - LIP SWELLING [None]
  - MIOSIS [None]
  - SPEECH DISORDER [None]
  - TONGUE DISORDER [None]
